FAERS Safety Report 5094600-6 (Version None)
Quarter: 2006Q3

REPORT INFORMATION
  Report Type: 
  Country: None (occurrence: None)
  Receive Date: 20060830
  Receipt Date: 20060814
  Transmission Date: 20061208
  Serious: Yes (Hospitalization)
  Sender: FDA-Public Use
  Company Number: US200606000805

PATIENT
  Age: 63 Year
  Sex: Male
  Weight: 104.3 kg

DRUGS (1)
  1. ZYPREXA [Suspect]
     Dosage: ORAL
     Route: 048
     Dates: start: 20030101, end: 20040101

REACTIONS (3)
  - CARDIAC DISORDER [None]
  - DIABETES MELLITUS [None]
  - INFECTION [None]
